FAERS Safety Report 8093131-9 (Version None)
Quarter: 2012Q1

REPORT INFORMATION
  Report Type: 
  Country: None (occurrence: None)
  Receive Date: 20120128
  Receipt Date: 20111003
  Transmission Date: 20120608
  Serious: No
  Sender: FDA-Public Use
  Company Number: US-ABBOTT-11P-163-0843953-00

PATIENT
  Age: 74 Year
  Sex: Female

DRUGS (8)
  1. ZOCOR [Concomitant]
     Indication: BLOOD CHOLESTEROL INCREASED
  2. VITAMIN D [Concomitant]
     Indication: VITAMIN SUPPLEMENTATION
  3. METOPROLOL TARTRATE [Concomitant]
     Indication: BLOOD PRESSURE
     Route: 048
  4. HYDROCHLOROTHIAZIDE [Concomitant]
     Indication: BLOOD PRESSURE
     Route: 048
  5. CALCIUM [Concomitant]
     Indication: MINERAL SUPPLEMENTATION
  6. LOVASTATIN [Concomitant]
     Indication: BLOOD CHOLESTEROL INCREASED
     Route: 048
  7. HUMIRA [Suspect]
     Indication: PSORIASIS
     Dates: start: 20100501, end: 20110727
  8. AMLODIPINE [Concomitant]
     Indication: BLOOD PRESSURE INCREASED

REACTIONS (7)
  - ARTHRALGIA [None]
  - DRY SKIN [None]
  - JOINT SWELLING [None]
  - ARTHRITIS [None]
  - PSORIASIS [None]
  - PAIN [None]
  - PAIN IN EXTREMITY [None]
